FAERS Safety Report 17857769 (Version 1)
Quarter: 2020Q2

REPORT INFORMATION
  Report Type: Spontaneous
  Country: US (occurrence: US)
  Receive Date: 20200604
  Receipt Date: 20200604
  Transmission Date: 20200714
  Serious: No
  Sender: FDA-Public Use
  Company Number: US-HETERO-HET2020US00587

PATIENT
  Sex: Female

DRUGS (1)
  1. FAMCICLOVIR. [Suspect]
     Active Substance: FAMCICLOVIR
     Indication: ORAL HERPES
     Dosage: 500 MG, BID
     Route: 048
     Dates: start: 20200526, end: 20200528

REACTIONS (2)
  - Blister [Unknown]
  - Drug ineffective [Unknown]
